FAERS Safety Report 19701431 (Version 2)
Quarter: 2021Q3

REPORT INFORMATION
  Report Type: Spontaneous
  Country: GB (occurrence: GB)
  Receive Date: 20210814
  Receipt Date: 20210903
  Transmission Date: 20211014
  Serious: Yes (Disabling)
  Sender: FDA-Public Use
  Company Number: NVSC2021GB175170

PATIENT
  Age: 43 Year
  Sex: Female
  Weight: 45.81 kg

DRUGS (2)
  1. OMEPRAZOLE. [Suspect]
     Active Substance: OMEPRAZOLE
     Indication: ABDOMINAL PAIN UPPER
     Dosage: 1 DF, QD
     Route: 048
     Dates: start: 202009, end: 202011
  2. PROBIOTIC [Concomitant]
     Active Substance: PROBIOTICS NOS
     Indication: PRODUCT USED FOR UNKNOWN INDICATION
     Dosage: UNK
     Route: 065

REACTIONS (10)
  - Diarrhoea [Recovered/Resolved with Sequelae]
  - Anxiety [Unknown]
  - Insomnia [Recovered/Resolved with Sequelae]
  - Abnormal loss of weight [Unknown]
  - Nausea [Recovered/Resolved with Sequelae]
  - Feeding disorder [Unknown]
  - Suicidal ideation [Recovered/Resolved with Sequelae]
  - Weight decreased [Unknown]
  - Duodenitis [Unknown]
  - Hiatus hernia [Unknown]

NARRATIVE: CASE EVENT DATE: 202009
